FAERS Safety Report 5771502-0 (Version None)
Quarter: 2008Q2

REPORT INFORMATION
  Report Type: 
  Country: None (occurrence: None)
  Receive Date: 20080613
  Receipt Date: 20080604
  Transmission Date: 20081010
  Serious: Yes (Other)
  Sender: FDA-Public Use
  Company Number: US-TYCO HEALTHCARE/MALLINCKRODT-T200800925

PATIENT

DRUGS (12)
  1. OPTIRAY 300 [Suspect]
     Indication: DIAGNOSTIC PROCEDURE
     Dosage: 100 ML, SINGLE
     Route: 042
     Dates: start: 20080507, end: 20080507
  2. COMPAZINE                          /00013302/ [Concomitant]
     Dosage: 10 MG, Q 6 HOURS, PRN
     Route: 048
  3. OMEPRAZOLE [Concomitant]
     Dosage: UNK, BID
     Route: 048
  4. MS CONTIN [Concomitant]
     Dosage: 15 MG, BID
     Route: 048
  5. OXYCONTIN [Concomitant]
     Dosage: 5 MG, Q4 HOURS, PRN
     Route: 048
  6. TEMAZEPAM [Concomitant]
     Dosage: 30 MG, HS, PRN
     Route: 048
  7. CITALOPRAM HYDROBROMIDE [Concomitant]
     Dosage: 40 MG, QD
     Route: 048
  8. ALBUTEROL [Concomitant]
     Dosage: 3 PUFFS, Q4HRS PRN
  9. XANAX [Concomitant]
     Dosage: .5 MG, 1-3 TIMES A DAY
     Route: 048
  10. TRAZODONE HYDROCHLORIDE [Concomitant]
     Dosage: 50 MG, @ HS
     Route: 048
  11. COMBIVENT                          /01261001/ [Concomitant]
     Dosage: 14.7 G, QID
  12. CHANTIX [Concomitant]
     Dosage: 1 MG, BID
     Route: 048

REACTIONS (4)
  - BLOOD PRESSURE DECREASED [None]
  - BRONCHOSPASM [None]
  - RASH ERYTHEMATOUS [None]
  - URTICARIA [None]
